FAERS Safety Report 7304295-6 (Version None)
Quarter: 2011Q1

REPORT INFORMATION
  Report Type: 
  Country: None (occurrence: None)
  Receive Date: 20110221
  Receipt Date: 20110118
  Transmission Date: 20110831
  Serious: No
  Sender: FDA-Public Use
  Company Number: US-BAYER-2011-007212

PATIENT
  Sex: Female

DRUGS (1)
  1. MIRENA [Suspect]
     Dosage: 20 MCG/24HR, CONT
     Route: 015
     Dates: start: 20080101

REACTIONS (6)
  - OVARIAN CYST [None]
  - DEVICE BREAKAGE [None]
  - HYPOMENORRHOEA [None]
  - METRORRHAGIA [None]
  - MENSTRUATION DELAYED [None]
  - VAGINAL DISCHARGE [None]
